FAERS Safety Report 17103906 (Version 2)
Quarter: 2019Q4

REPORT INFORMATION
  Report Type: Report from Study
  Country: TR (occurrence: TR)
  Receive Date: 20191203
  Receipt Date: 20191210
  Transmission Date: 20200122
  Serious: Yes (Life-Threatening)
  Sender: FDA-Public Use
  Company Number: TR-BAYER-2019-216918

PATIENT
  Sex: Male
  Weight: 62 kg

DRUGS (37)
  1. COPANLISIB. [Suspect]
     Active Substance: COPANLISIB
     Indication: NON-HODGKIN^S LYMPHOMA RECURRENT
     Dosage: 60MG
     Route: 042
     Dates: start: 20190724, end: 20190724
  2. COPANLISIB. [Suspect]
     Active Substance: COPANLISIB
     Indication: NON-HODGKIN^S LYMPHOMA RECURRENT
     Dosage: 60MG
     Route: 042
     Dates: start: 20190821, end: 20190821
  3. COPANLISIB. [Suspect]
     Active Substance: COPANLISIB
     Indication: NON-HODGKIN^S LYMPHOMA RECURRENT
     Dosage: 60MG
     Route: 042
     Dates: start: 20191023, end: 20191023
  4. RITUXIMAB. [Suspect]
     Active Substance: RITUXIMAB
     Indication: NON-HODGKIN^S LYMPHOMA RECURRENT
     Dosage: 375MG
     Route: 042
     Dates: start: 20191113, end: 20191113
  5. BENDAMUSTINE [Suspect]
     Active Substance: BENDAMUSTINE
     Indication: NON-HODGKIN^S LYMPHOMA RECURRENT
     Dosage: 90MG
     Route: 042
     Dates: start: 20190822, end: 20190822
  6. BENDAMUSTINE [Suspect]
     Active Substance: BENDAMUSTINE
     Indication: NON-HODGKIN^S LYMPHOMA RECURRENT
     Dosage: 90MG
     Route: 042
     Dates: start: 20191113, end: 20191113
  7. COPANLISIB. [Suspect]
     Active Substance: COPANLISIB
     Indication: NON-HODGKIN^S LYMPHOMA RECURRENT
     Dosage: 60MG
     Route: 042
     Dates: start: 20190828, end: 20190828
  8. COPANLISIB. [Suspect]
     Active Substance: COPANLISIB
     Indication: NON-HODGKIN^S LYMPHOMA RECURRENT
     Dosage: 60MG
     Route: 042
     Dates: start: 20191016, end: 20191016
  9. RITUXIMAB. [Suspect]
     Active Substance: RITUXIMAB
     Indication: NON-HODGKIN^S LYMPHOMA RECURRENT
     Dosage: 375MG
     Route: 042
     Dates: start: 20191016, end: 20191016
  10. BENDAMUSTINE [Suspect]
     Active Substance: BENDAMUSTINE
     Indication: NON-HODGKIN^S LYMPHOMA RECURRENT
     Dosage: 90MG
     Route: 042
     Dates: start: 20191114, end: 20191114
  11. COPANLISIB. [Suspect]
     Active Substance: COPANLISIB
     Indication: NON-HODGKIN^S LYMPHOMA RECURRENT
     Dosage: 60MG
     Route: 042
     Dates: start: 20191030, end: 20191030
  12. RITUXIMAB. [Suspect]
     Active Substance: RITUXIMAB
     Indication: NON-HODGKIN^S LYMPHOMA RECURRENT
     Dosage: 375MG
     Route: 042
     Dates: start: 20190918, end: 20190918
  13. BENDAMUSTINE [Suspect]
     Active Substance: BENDAMUSTINE
     Indication: NON-HODGKIN^S LYMPHOMA RECURRENT
     Dosage: 90MG
     Route: 042
     Dates: start: 20190919, end: 20190919
  14. COPANLISIB. [Suspect]
     Active Substance: COPANLISIB
     Indication: NON-HODGKIN^S LYMPHOMA RECURRENT
     Dosage: 60MG
     Route: 042
     Dates: start: 20190627, end: 20190627
  15. COPANLISIB. [Suspect]
     Active Substance: COPANLISIB
     Indication: NON-HODGKIN^S LYMPHOMA RECURRENT
     Dosage: 60MG
     Route: 042
     Dates: start: 20190925, end: 20190925
  16. COPANLISIB. [Suspect]
     Active Substance: COPANLISIB
     Indication: NON-HODGKIN^S LYMPHOMA RECURRENT
     Dosage: 60MG
     Route: 042
     Dates: start: 20191002, end: 20191002
  17. COPANLISIB. [Suspect]
     Active Substance: COPANLISIB
     Indication: NON-HODGKIN^S LYMPHOMA RECURRENT
     Dosage: 60MG
     Route: 042
     Dates: start: 20191120, end: 20191120
  18. RITUXIMAB. [Suspect]
     Active Substance: RITUXIMAB
     Indication: NON-HODGKIN^S LYMPHOMA RECURRENT
     Dosage: 375MG
     Route: 042
     Dates: start: 20190821, end: 20190821
  19. BENDAMUSTINE [Suspect]
     Active Substance: BENDAMUSTINE
     Indication: NON-HODGKIN^S LYMPHOMA RECURRENT
     Dosage: 90MG
     Route: 042
     Dates: start: 20190620, end: 20190620
  20. BENDAMUSTINE [Suspect]
     Active Substance: BENDAMUSTINE
     Indication: NON-HODGKIN^S LYMPHOMA RECURRENT
     Dosage: 90MG
     Route: 042
     Dates: start: 20190718, end: 20190718
  21. BENDAMUSTINE [Suspect]
     Active Substance: BENDAMUSTINE
     Indication: NON-HODGKIN^S LYMPHOMA RECURRENT
     Dosage: 90MG
     Route: 042
     Dates: start: 20190821, end: 20190821
  22. BENDAMUSTINE [Suspect]
     Active Substance: BENDAMUSTINE
     Indication: NON-HODGKIN^S LYMPHOMA RECURRENT
     Dosage: 90MG
     Route: 042
     Dates: start: 20191016, end: 20191016
  23. FILGRASTIM [Concomitant]
     Active Substance: FILGRASTIM
     Indication: PROPHYLAXIS
     Dosage: 48 MU1/0.8ML, TWICE A WEEK
     Route: 058
     Dates: start: 20190820, end: 20191023
  24. COPANLISIB. [Suspect]
     Active Substance: COPANLISIB
     Indication: NON-HODGKIN^S LYMPHOMA RECURRENT
     Dosage: 60MG
     Route: 042
     Dates: start: 20190717, end: 20190717
  25. COPANLISIB. [Suspect]
     Active Substance: COPANLISIB
     Indication: NON-HODGKIN^S LYMPHOMA RECURRENT
     Dosage: 60MG
     Route: 042
     Dates: start: 20190904, end: 20190904
  26. COPANLISIB. [Suspect]
     Active Substance: COPANLISIB
     Indication: NON-HODGKIN^S LYMPHOMA RECURRENT
     Dosage: 60MG
     Route: 042
     Dates: start: 20190918, end: 20190918
  27. RITUXIMAB. [Suspect]
     Active Substance: RITUXIMAB
     Indication: NON-HODGKIN^S LYMPHOMA RECURRENT
     Dosage: 375MG
     Route: 042
     Dates: start: 20190620, end: 20190620
  28. RITUXIMAB. [Suspect]
     Active Substance: RITUXIMAB
     Indication: NON-HODGKIN^S LYMPHOMA RECURRENT
     Dosage: 375MG
     Route: 042
     Dates: start: 20190717, end: 20190717
  29. BENDAMUSTINE [Suspect]
     Active Substance: BENDAMUSTINE
     Indication: NON-HODGKIN^S LYMPHOMA RECURRENT
     Dosage: 90MG
     Route: 042
     Dates: start: 20190918, end: 20190918
  30. COPANLISIB. [Suspect]
     Active Substance: COPANLISIB
     Indication: NON-HODGKIN^S LYMPHOMA RECURRENT
     Dosage: 60MG
     Route: 042
     Dates: start: 20191113, end: 20191113
  31. BENDAMUSTINE [Suspect]
     Active Substance: BENDAMUSTINE
     Indication: NON-HODGKIN^S LYMPHOMA RECURRENT
     Dosage: 90MG
     Route: 042
     Dates: start: 20190717, end: 20190717
  32. FILGRASTIM [Concomitant]
     Active Substance: FILGRASTIM
     Indication: PROPHYLAXIS
     Dosage: 48 MU1/0.8ML, TWICE A WEEK
     Route: 058
     Dates: start: 20190718, end: 20190819
  33. FILGRASTIM [Concomitant]
     Active Substance: FILGRASTIM
     Indication: PROPHYLAXIS
     Dosage: 30 MU1/0.5ML, TWICE A WEEK
     Route: 058
     Dates: start: 20191023, end: 20191127
  34. COPANLISIB. [Suspect]
     Active Substance: COPANLISIB
     Indication: NON-HODGKIN^S LYMPHOMA RECURRENT
     Dosage: 60MG
     Route: 042
     Dates: start: 20190620, end: 20190620
  35. COPANLISIB. [Suspect]
     Active Substance: COPANLISIB
     Indication: NON-HODGKIN^S LYMPHOMA RECURRENT
     Dosage: 60MG
     Route: 042
     Dates: start: 20190731, end: 20190731
  36. BENDAMUSTINE [Suspect]
     Active Substance: BENDAMUSTINE
     Indication: NON-HODGKIN^S LYMPHOMA RECURRENT
     Dosage: 90MG
     Route: 042
     Dates: start: 20190621, end: 20190621
  37. BENDAMUSTINE [Suspect]
     Active Substance: BENDAMUSTINE
     Indication: NON-HODGKIN^S LYMPHOMA RECURRENT
     Dosage: 90MG
     Route: 042
     Dates: start: 20191017, end: 20191017

REACTIONS (1)
  - Febrile neutropenia [Recovered/Resolved]

NARRATIVE: CASE EVENT DATE: 20191127
